FAERS Safety Report 25180017 (Version 10)
Quarter: 2025Q4

REPORT INFORMATION
  Report Type: Report from Study
  Country: IN (occurrence: IN)
  Receive Date: 20250409
  Receipt Date: 20251211
  Transmission Date: 20260118
  Serious: Yes (Other)
  Sender: PFIZER
  Company Number: IN-PFIZER INC-202200746782

PATIENT
  Age: 61 Year
  Sex: Female
  Weight: 72 kg

DRUGS (55)
  1. PALBOCICLIB [Suspect]
     Active Substance: PALBOCICLIB
     Indication: Breast cancer metastatic
     Dosage: 1ST CYCLE
     Route: 048
     Dates: start: 20220303, end: 20220323
  2. PALBOCICLIB [Suspect]
     Active Substance: PALBOCICLIB
     Dosage: 125 MG PER DAY
     Route: 048
     Dates: start: 20220331, end: 20220420
  3. PALBOCICLIB [Suspect]
     Active Substance: PALBOCICLIB
     Dosage: 125 MG PER DAY
     Route: 048
     Dates: start: 20220428, end: 20220518
  4. PALBOCICLIB [Suspect]
     Active Substance: PALBOCICLIB
     Dosage: 125 MG PER DAY
     Route: 048
     Dates: start: 20220530, end: 20220619
  5. PALBOCICLIB [Suspect]
     Active Substance: PALBOCICLIB
     Dosage: 125 MG PER DAY
     Route: 048
     Dates: start: 20220627, end: 20220717
  6. PALBOCICLIB [Suspect]
     Active Substance: PALBOCICLIB
     Dosage: 6TH
     Dates: start: 20220725, end: 20220814
  7. PALBOCICLIB [Suspect]
     Active Substance: PALBOCICLIB
     Dosage: 7TH
     Dates: start: 20220822, end: 20220911
  8. PALBOCICLIB [Suspect]
     Active Substance: PALBOCICLIB
     Dosage: 8TH
     Dates: start: 20220919, end: 20221009
  9. PALBOCICLIB [Suspect]
     Active Substance: PALBOCICLIB
     Dosage: 9TH
     Dates: start: 20221017, end: 20221106
  10. PALBOCICLIB [Suspect]
     Active Substance: PALBOCICLIB
     Dosage: 10TH
     Dates: start: 20221114, end: 20221204
  11. PALBOCICLIB [Suspect]
     Active Substance: PALBOCICLIB
     Dosage: 11ST
     Dates: start: 20221212, end: 20230101
  12. PALBOCICLIB [Suspect]
     Active Substance: PALBOCICLIB
     Dosage: 12ND
     Dates: start: 20230109, end: 20230129
  13. PALBOCICLIB [Suspect]
     Active Substance: PALBOCICLIB
     Dosage: 13TH
     Route: 048
     Dates: start: 20230205, end: 20230226
  14. PALBOCICLIB [Suspect]
     Active Substance: PALBOCICLIB
     Dosage: 14TH
     Dates: start: 20230306, end: 20230326
  15. PALBOCICLIB [Suspect]
     Active Substance: PALBOCICLIB
     Dosage: 15TH
     Dates: start: 20230403, end: 20230423
  16. PALBOCICLIB [Suspect]
     Active Substance: PALBOCICLIB
     Dosage: 16TH
     Dates: start: 20230501, end: 20230521
  17. PALBOCICLIB [Suspect]
     Active Substance: PALBOCICLIB
     Dosage: 17TH
     Dates: start: 20230529, end: 20230618
  18. PALBOCICLIB [Suspect]
     Active Substance: PALBOCICLIB
     Dosage: 18TH
     Dates: start: 20230628, end: 20230718
  19. PALBOCICLIB [Suspect]
     Active Substance: PALBOCICLIB
     Dosage: 19TH
     Dates: start: 20230726, end: 20230815
  20. PALBOCICLIB [Suspect]
     Active Substance: PALBOCICLIB
     Dosage: 20TH
     Dates: start: 20230828, end: 20230917
  21. PALBOCICLIB [Suspect]
     Active Substance: PALBOCICLIB
     Dosage: 21ST (D1-21)
     Route: 048
     Dates: start: 20230927, end: 20231026
  22. PALBOCICLIB [Suspect]
     Active Substance: PALBOCICLIB
     Dosage: 22TH
     Dates: start: 20231103, end: 20231123
  23. PALBOCICLIB [Suspect]
     Active Substance: PALBOCICLIB
     Dosage: 23TH
     Dates: start: 20231209, end: 20231229
  24. PALBOCICLIB [Suspect]
     Active Substance: PALBOCICLIB
     Dosage: 24TH
     Dates: start: 20240109, end: 20240127
  25. PALBOCICLIB [Suspect]
     Active Substance: PALBOCICLIB
     Dosage: 25TH
     Dates: start: 20240204, end: 20240224
  26. PALBOCICLIB [Suspect]
     Active Substance: PALBOCICLIB
     Dosage: 26TH
     Dates: start: 20240303, end: 20240323
  27. PALBOCICLIB [Suspect]
     Active Substance: PALBOCICLIB
     Dosage: 27TH
     Dates: start: 20240402, end: 20240422
  28. PALBOCICLIB [Suspect]
     Active Substance: PALBOCICLIB
     Dosage: 28TH
     Dates: start: 20240430, end: 20240520
  29. PALBOCICLIB [Suspect]
     Active Substance: PALBOCICLIB
     Dosage: 29TH (D1-21)
     Route: 048
     Dates: start: 20240528, end: 20240617
  30. PALBOCICLIB [Suspect]
     Active Substance: PALBOCICLIB
     Dosage: 30TH
     Dates: start: 20240626, end: 20240716
  31. PALBOCICLIB [Suspect]
     Active Substance: PALBOCICLIB
     Dosage: 31ST
     Dates: start: 20240724, end: 20240813
  32. PALBOCICLIB [Suspect]
     Active Substance: PALBOCICLIB
     Dosage: 32ND
     Dates: start: 20240821, end: 20240910
  33. PALBOCICLIB [Suspect]
     Active Substance: PALBOCICLIB
     Dosage: 33TH
     Dates: start: 20240918, end: 20241008
  34. PALBOCICLIB [Suspect]
     Active Substance: PALBOCICLIB
     Dosage: 34TH
     Dates: start: 20241018, end: 20241107
  35. PALBOCICLIB [Suspect]
     Active Substance: PALBOCICLIB
     Dosage: 35TH
     Dates: start: 20241115, end: 20241205
  36. PALBOCICLIB [Suspect]
     Active Substance: PALBOCICLIB
     Dosage: 36TH
     Dates: start: 20241213, end: 20250102
  37. PALBOCICLIB [Suspect]
     Active Substance: PALBOCICLIB
     Dosage: 37TH
     Dates: start: 20250110, end: 20250130
  38. PALBOCICLIB [Suspect]
     Active Substance: PALBOCICLIB
     Dosage: 38TH
     Dates: start: 20250207, end: 20250227
  39. PALBOCICLIB [Suspect]
     Active Substance: PALBOCICLIB
     Dosage: 39TH
     Dates: start: 20250312, end: 20250401
  40. PALBOCICLIB [Suspect]
     Active Substance: PALBOCICLIB
     Dosage: 40TH
     Dates: start: 20250410, end: 20250430
  41. PALBOCICLIB [Suspect]
     Active Substance: PALBOCICLIB
     Dosage: 125 MG OD
     Route: 048
  42. PALBOCICLIB [Suspect]
     Active Substance: PALBOCICLIB
     Dosage: 41TH
     Dates: start: 20250508, end: 20250528
  43. PALBOCICLIB [Suspect]
     Active Substance: PALBOCICLIB
     Dosage: 42TH
     Dates: start: 20250605, end: 20250625
  44. PALBOCICLIB [Suspect]
     Active Substance: PALBOCICLIB
     Dosage: 43TH
     Dates: start: 20250703, end: 20250723
  45. PALBOCICLIB [Suspect]
     Active Substance: PALBOCICLIB
     Dosage: 44TH
     Dates: start: 20250801, end: 20250821
  46. PALBOCICLIB [Suspect]
     Active Substance: PALBOCICLIB
     Dosage: CYCLE 44
     Dates: start: 20250809, end: 20250829
  47. PALBOCICLIB [Suspect]
     Active Substance: PALBOCICLIB
     Dosage: 45TH
     Dates: start: 20250906, end: 20250926
  48. PALBOCICLIB [Suspect]
     Active Substance: PALBOCICLIB
     Dosage: 46TH
     Dates: start: 20251004, end: 20251024
  49. PALBOCICLIB [Suspect]
     Active Substance: PALBOCICLIB
     Dosage: 125 MG, 1X/DAY
     Route: 048
  50. LETROZOLE [Concomitant]
     Active Substance: LETROZOLE
     Indication: Breast cancer metastatic
     Dosage: 2.5 MG, 1X/DAY
  51. LETROZOLE [Concomitant]
     Active Substance: LETROZOLE
     Dosage: 2.5 MG, 1X/DAY(D1-28)
  52. ANASTROZOLE [Concomitant]
     Active Substance: ANASTROZOLE
     Indication: Breast cancer metastatic
     Dosage: 1 MG, 1X/DAY (D1-28)
     Dates: start: 20230926
  53. ANASTROZOLE [Concomitant]
     Active Substance: ANASTROZOLE
     Dosage: 1 MG, 1X/DAY (1-X-X CT)
  54. ANASTROZOLE [Concomitant]
     Active Substance: ANASTROZOLE
     Dosage: 1MG 1-0-0
  55. CALCIUM\CHOLECALCIFEROL [Concomitant]
     Active Substance: CALCIUM\CHOLECALCIFEROL
     Dosage: UNK, 2X/DAY

REACTIONS (26)
  - Leukopenia [Unknown]
  - Cataract [Recovered/Resolved]
  - Breast cancer metastatic [Unknown]
  - Malignant neoplasm progression [Unknown]
  - Metastases to lung [Unknown]
  - Metastasis [Unknown]
  - Platelet count decreased [Not Recovered/Not Resolved]
  - Haemoglobin decreased [Unknown]
  - Pain [Recovered/Resolved]
  - Osteoporosis [Unknown]
  - Asthenia [Unknown]
  - Hypertension [Unknown]
  - Alopecia [Unknown]
  - Poikilocytosis [Unknown]
  - Red blood cell count decreased [Recovering/Resolving]
  - Haematocrit decreased [Not Recovered/Not Resolved]
  - Mean cell volume increased [Not Recovered/Not Resolved]
  - Mean cell haemoglobin increased [Not Recovered/Not Resolved]
  - Red cell distribution width increased [Not Recovered/Not Resolved]
  - Lymphocyte percentage increased [Unknown]
  - Monocyte count decreased [Recovering/Resolving]
  - Eosinophil percentage increased [Unknown]
  - Red blood cell sedimentation rate increased [Unknown]
  - Basophil count decreased [Unknown]
  - Hernia [Recovered/Resolved]
  - Full blood count abnormal [Unknown]

NARRATIVE: CASE EVENT DATE: 20220101
